FAERS Safety Report 5009828-0 (Version None)
Quarter: 2006Q2

REPORT INFORMATION
  Report Type: 
  Country: None (occurrence: None)
  Receive Date: 20060522
  Receipt Date: 20060508
  Transmission Date: 20061013
  Serious: Yes (Death, Life-Threatening, Other)
  Sender: FDA-Public Use
  Company Number: 2006062832

PATIENT
  Age: 66 Year
  Sex: Male
  Weight: 53 kg

DRUGS (9)
  1. SOLU-MEDROL [Suspect]
     Indication: NON-HODGKIN'S LYMPHOMA STAGE IV
     Dosage: 500 MG (500 MG, 1 IN 1 D), INTRAVENOUS
     Route: 042
     Dates: start: 20050907, end: 20050911
  2. CYTARABINE [Suspect]
     Indication: NON-HODGKIN'S LYMPHOMA STAGE IV
     Dosage: 3.04 GRAM (3.04 GRAM,  1 IN 1 D), INTRAVENOUS
     Route: 042
     Dates: start: 20050911, end: 20050911
  3. ETOPOSIDE [Suspect]
     Indication: NON-HODGKIN'S LYMPHOMA STAGE IV
     Dosage: 40 MG (40 MG, 1 IN 1 D), INTRAVENOUS
     Route: 042
     Dates: start: 20050907, end: 20050910
  4. CISPLATIN [Suspect]
     Indication: NON-HODGKIN'S LYMPHOMA STAGE IV
     Dosage: 25 MG (25 MG, 1 IN 1 D), INTRAVENOUS
     Route: 042
     Dates: start: 20050907, end: 20050910
  5. ZOFRAN [Concomitant]
  6. BETAMETHASONE [Concomitant]
  7. NEUPOGEN [Concomitant]
  8. GAMIMUNE N 5% [Concomitant]
  9. PIPERACILLIN SODIUM [Concomitant]

REACTIONS (5)
  - CARDIAC FAILURE [None]
  - DISSEMINATED INTRAVASCULAR COAGULATION [None]
  - FEBRILE NEUTROPENIA [None]
  - SEPSIS [None]
  - SYSTEMIC INFLAMMATORY RESPONSE SYNDROME [None]
